FAERS Safety Report 15794181 (Version 1)
Quarter: 2018Q4

REPORT INFORMATION
  Report Type: Spontaneous
  Country: US (occurrence: US)
  Receive Date: 20181213
  Receipt Date: 20181213
  Transmission Date: 20190205
  Serious: No
  Sender: FDA-Public Use
  Company Number: None

PATIENT
  Age: 5 Month
  Sex: Female

DRUGS (1)
  1. IMATINIB 400MG TAB (X30) [Suspect]
     Active Substance: IMATINIB
     Indication: GASTROINTESTINAL STROMAL TUMOUR
     Dates: start: 201811

REACTIONS (6)
  - Rash [None]
  - Swelling face [None]
  - Dry skin [None]
  - Oropharyngeal pain [None]
  - Joint swelling [None]
  - Abdominal pain upper [None]

NARRATIVE: CASE EVENT DATE: 20181211
